FAERS Safety Report 13790869 (Version 2)
Quarter: 2017Q3

REPORT INFORMATION
  Report Type: Spontaneous
  Country: JP (occurrence: JP)
  Receive Date: 20170725
  Receipt Date: 20170801
  Transmission Date: 20171127
  Serious: Yes (Other)
  Sender: FDA-Public Use
  Company Number: JP-PFIZER INC-2017147634

PATIENT
  Age: 43 Year
  Sex: Male
  Weight: 105 kg

DRUGS (3)
  1. MEROPENEM. [Suspect]
     Active Substance: MEROPENEM
     Indication: MENINGITIS BACTERIAL
     Dosage: 2 G, 3X/DAY
     Route: 041
     Dates: start: 20150103, end: 20150130
  2. DEXAMETHASONE. [Concomitant]
     Active Substance: DEXAMETHASONE
     Dosage: 3.3 MG, 3X/DAY
     Route: 041
  3. VANCOMYCIN [Suspect]
     Active Substance: VANCOMYCIN
     Indication: MENINGITIS BACTERIAL
     Dosage: 1 G, 2X/DAY
     Route: 041
     Dates: end: 20150128

REACTIONS (2)
  - Toxic skin eruption [Recovered/Resolved]
  - Drug eruption [Recovered/Resolved]

NARRATIVE: CASE EVENT DATE: 20150126
